FAERS Safety Report 9238254 (Version 1)
Quarter: 2013Q2

REPORT INFORMATION
  Report Type: Spontaneous
  Country: FR (occurrence: FR)
  Receive Date: 20130418
  Receipt Date: 20130418
  Transmission Date: 20140414
  Serious: Yes (Hospitalization, Other)
  Sender: FDA-Public Use
  Company Number: FR-009507513-0611FRA00003

PATIENT
  Age: 65 Year
  Sex: Male
  Weight: 74 kg

DRUGS (2)
  1. MK-0966 [Suspect]
     Indication: OSTEOARTHRITIS
     Dosage: 25 MG, QD
     Route: 048
     Dates: start: 200202, end: 20040723
  2. THERAPY UNSPECIFIED [Concomitant]
     Indication: HYPERTENSION

REACTIONS (1)
  - Myocardial infarction [Recovered/Resolved]
